FAERS Safety Report 5284560-7 (Version None)
Quarter: 2007Q2

REPORT INFORMATION
  Report Type: 
  Country: None (occurrence: None)
  Receive Date: 20070403
  Receipt Date: 20070327
  Transmission Date: 20071010
  Serious: Yes (Other)
  Sender: FDA-Public Use
  Company Number: DK-GLAXOSMITHKLINE-B0464487A

PATIENT
  Sex: Female

DRUGS (4)
  1. LAMICTAL [Suspect]
     Indication: EPILEPSY
     Dosage: 300MG PER DAY
     Route: 065
     Dates: start: 20000101
  2. ACETAMINOPHEN [Concomitant]
     Dosage: 3G PER DAY
     Route: 065
  3. RIVOTRIL [Concomitant]
     Indication: EPILEPSY
     Dosage: 1MG PER DAY
  4. KODEIN [Concomitant]
     Dosage: 75MG PER DAY

REACTIONS (3)
  - DEPRESSED LEVEL OF CONSCIOUSNESS [None]
  - VERTIGO [None]
  - VISION BLURRED [None]
